FAERS Safety Report 25156072 (Version 7)
Quarter: 2025Q2

REPORT INFORMATION
  Report Type: Spontaneous
  Country: DE (occurrence: DE)
  Receive Date: 20250403
  Receipt Date: 20250515
  Transmission Date: 20250716
  Serious: Yes (Hospitalization, Disabling, Other)
  Sender: SANOFI AVENTIS
  Company Number: DE-SANOFI-02468633

PATIENT
  Age: 44 Year
  Sex: Female
  Weight: 92 kg

DRUGS (10)
  1. VALPROIC ACID [Suspect]
     Active Substance: VALPROIC ACID
  2. VALPROIC ACID [Suspect]
     Active Substance: VALPROIC ACID
     Dosage: 2400 UNK, QD (2400 A DAY)
  3. ENOXAPARIN SODIUM [Suspect]
     Active Substance: ENOXAPARIN SODIUM
     Dates: start: 201504
  4. FUROSEMIDE [Suspect]
     Active Substance: FUROSEMIDE
     Dosage: 40 MG, QD
  5. METOPROLOL SUCCINATE [Concomitant]
     Active Substance: METOPROLOL SUCCINATE
     Dosage: 23.75 MG, BID
  6. MOVICOL [Concomitant]
     Active Substance: POLYETHYLENE GLYCOL 3350\POTASSIUM CHLORIDE\SODIUM BICARBONATE\SODIUM CHLORIDE
  7. ATORVASTATIN [Concomitant]
     Active Substance: ATORVASTATIN
     Dosage: 20 MG, QD
  8. CHOLECALCIFEROL [Concomitant]
     Active Substance: CHOLECALCIFEROL
     Dosage: 500 IU, QD
  9. URSODIOL [Concomitant]
     Active Substance: URSODIOL
     Dosage: 500 MG, BID
  10. TROSPIUM CHLORIDE [Concomitant]
     Active Substance: TROSPIUM CHLORIDE
     Dosage: 15 MG, BID

REACTIONS (23)
  - Tibia fracture [Unknown]
  - Paralysis [Not Recovered/Not Resolved]
  - Muscle spasms [Unknown]
  - Ventricle rupture [Unknown]
  - Fall [Unknown]
  - Paralysis [Unknown]
  - Phaeochromocytoma [Unknown]
  - Intraventricular haemorrhage [Unknown]
  - Epilepsy [Unknown]
  - Liver injury [Unknown]
  - Head discomfort [Unknown]
  - Haemorrhage intracranial [Unknown]
  - Basal ganglia haemorrhage [Unknown]
  - Fibrosis [Unknown]
  - Apraxia [Unknown]
  - Hepatic steatosis [Unknown]
  - Hypertension [Unknown]
  - Hypercholesterolaemia [Unknown]
  - Tremor [Unknown]
  - Vitamin D deficiency [Unknown]
  - Obesity [Unknown]
  - Osteoporosis [Unknown]
  - Toxicity to various agents [Unknown]

NARRATIVE: CASE EVENT DATE: 20150101
